FAERS Safety Report 4578701-4 (Version None)
Quarter: 2005Q1

REPORT INFORMATION
  Report Type: 
  Country: None (occurrence: None)
  Receive Date: 20050209
  Receipt Date: 20050209
  Transmission Date: 20050727
  Serious: Yes (Hospitalization)
  Sender: FDA-Public Use
  Company Number: None

PATIENT
  Age: 6 Year
  Sex: Male
  Weight: 21 kg

DRUGS (3)
  1. CLEOCIN [Suspect]
     Indication: BACTERIAL INFECTION
     Dates: start: 20050127, end: 20050203
  2. CLEOCIN [Suspect]
     Indication: DISEASE RECURRENCE
     Dates: start: 20050127, end: 20050203
  3. CLEOCIN [Suspect]
     Indication: STREPTOCOCCAL INFECTION
     Dates: start: 20050127, end: 20050203

REACTIONS (3)
  - SCARLET FEVER [None]
  - STEVENS-JOHNSON SYNDROME [None]
  - TYPE IV HYPERSENSITIVITY REACTION [None]
